FAERS Safety Report 8593171-7 (Version None)
Quarter: 2012Q3

REPORT INFORMATION
  Report Type: 
  Country: None (occurrence: None)
  Receive Date: 20120814
  Receipt Date: 20120813
  Transmission Date: 20120928
  Serious: Yes (Other)
  Sender: FDA-Public Use
  Company Number: US-PFIZER INC-2012197614

PATIENT
  Age: 87 Year
  Sex: Female

DRUGS (2)
  1. DETROL LA [Suspect]
     Indication: URINARY INCONTINENCE
     Dosage: 4 MG, 1X/DAY
     Route: 048
  2. RESPERAL-DM [Concomitant]
     Dosage: UNK

REACTIONS (1)
  - DEMENTIA ALZHEIMER'S TYPE [None]
